FAERS Safety Report 18585666 (Version 1)
Quarter: 2020Q4

REPORT INFORMATION
  Report Type: Spontaneous
  Country: US (occurrence: US)
  Receive Date: 20201207
  Receipt Date: 20201207
  Transmission Date: 20210114
  Serious: No
  Sender: FDA-Public Use
  Company Number: US-PFIZER INC-2020475697

PATIENT
  Age: 62 Year
  Sex: Female
  Weight: 127.01 kg

DRUGS (2)
  1. VERAPAMIL HCL [Interacting]
     Active Substance: VERAPAMIL HYDROCHLORIDE
     Dosage: UNK
  2. IBRANCE [Suspect]
     Active Substance: PALBOCICLIB
     Indication: BREAST CANCER METASTATIC
     Dosage: 125 MG, CYCLIC (125 MG, AT AROUND 6PM. SHE TAKES IT 3 WEEK ON AND 1 WEEK OFF)
     Dates: start: 2019

REACTIONS (1)
  - Drug interaction [Unknown]
